FAERS Safety Report 4330868-9 (Version None)
Quarter: 2004Q1

REPORT INFORMATION
  Report Type: 
  Country: None (occurrence: None)
  Receive Date: 20040331
  Receipt Date: 20040315
  Transmission Date: 20041129
  Serious: Yes (Hospitalization, Other)
  Sender: FDA-Public Use
  Company Number: USA040362090

PATIENT
  Age: 68 Year
  Sex: Female
  Weight: 58 kg

DRUGS (1)
  1. FORTEO [Suspect]
     Indication: OSTEOPOROSIS
     Dosage: 20 UG/1 DAY
     Dates: start: 20040101

REACTIONS (3)
  - ASTHENIA [None]
  - DIABETIC COMA [None]
  - PHARMACEUTICAL PRODUCT COMPLAINT [None]
